FAERS Safety Report 4611099-1 (Version None)
Quarter: 2005Q1

REPORT INFORMATION
  Report Type: 
  Country: None (occurrence: None)
  Receive Date: 20050316
  Receipt Date: 20050316
  Transmission Date: 20050727
  Serious: Yes (Death, Hospitalization)
  Sender: FDA-Public Use
  Company Number: None

PATIENT
  Age: 57 Year
  Sex: Female
  Weight: 75 kg

DRUGS (3)
  1. TOPOTECAN  DAYS 1, 8, 15 Q 4 WKS [Suspect]
     Indication: SMALL CELL LUNG CANCER METASTATIC
     Dosage: 4MG/M2 = 7.0 MG  DAYS 1, 8,15  Q 4 WKS
     Dates: start: 20050120
  2. TOPOTECAN  DAYS 1, 8, 15 Q 4 WKS [Suspect]
     Indication: SMALL CELL LUNG CANCER METASTATIC
     Dosage: 4MG/M2 = 7.0 MG  DAYS 1, 8,15  Q 4 WKS
     Dates: start: 20050127
  3. TOPOTECAN  DAYS 1, 8, 15 Q 4 WKS [Suspect]
     Indication: SMALL CELL LUNG CANCER METASTATIC
     Dosage: 4MG/M2 = 7.0 MG  DAYS 1, 8,15  Q 4 WKS
     Dates: start: 20050203

REACTIONS (11)
  - ADRENAL DISORDER [None]
  - BLOOD BILIRUBIN INCREASED [None]
  - DISEASE PROGRESSION [None]
  - GENERAL PHYSICAL HEALTH DETERIORATION [None]
  - LIVER FUNCTION TEST ABNORMAL [None]
  - NAUSEA [None]
  - OEDEMA PERIPHERAL [None]
  - PO2 DECREASED [None]
  - RENAL FAILURE [None]
  - STUPOR [None]
  - URINE OUTPUT DECREASED [None]
